FAERS Safety Report 6151561-6 (Version None)
Quarter: 2009Q2

REPORT INFORMATION
  Report Type: 
  Country: None (occurrence: None)
  Receive Date: 20090410
  Receipt Date: 20090401
  Transmission Date: 20091009
  Serious: Yes (Hospitalization, Other)
  Sender: FDA-Public Use
  Company Number: IL-AMGEN-US341556

PATIENT
  Age: 60 Year
  Sex: Female

DRUGS (2)
  1. ENBREL [Suspect]
     Indication: RHEUMATOID ARTHRITIS
     Route: 058
     Dates: start: 20070101
  2. NSAID'S [Suspect]

REACTIONS (5)
  - BLOOD CREATININE DECREASED [None]
  - GLOMERULONEPHRITIS [None]
  - PYREXIA [None]
  - RENAL FAILURE [None]
  - TUBERCULOSIS [None]
